FAERS Safety Report 4756355-1 (Version None)
Quarter: 2005Q3

REPORT INFORMATION
  Report Type: 
  Country: None (occurrence: None)
  Receive Date: 20050830
  Receipt Date: 20050607
  Transmission Date: 20060218
  Serious: Yes (Life-Threatening, Hospitalization, Other)
  Sender: FDA-Public Use
  Company Number: US-GLAXOSMITHKLINE-A0561632A

PATIENT
  Age: 28 Year
  Sex: Male
  Weight: 80.9 kg

DRUGS (2)
  1. WELLBUTRIN [Suspect]
     Indication: DRUG USE FOR UNKNOWN INDICATION
     Dosage: 150MG PER DAY
     Route: 048
  2. LEVAQUIN [Suspect]
     Indication: POSTOPERATIVE INFECTION

REACTIONS (2)
  - AMNESIA [None]
  - GRAND MAL CONVULSION [None]
